FAERS Safety Report 8009326-6 (Version None)
Quarter: 2011Q4

REPORT INFORMATION
  Report Type: 
  Country: None (occurrence: None)
  Receive Date: 20111227
  Receipt Date: 20111219
  Transmission Date: 20120403
  Serious: Yes (Hospitalization)
  Sender: FDA-Public Use
  Company Number: BE-ABBOTT-11P-013-0884692-00

PATIENT
  Age: 80 Year
  Sex: Female

DRUGS (4)
  1. SIVASTAN [Concomitant]
  2. VALPROATE SODIUM [Suspect]
     Indication: MIGRAINE PROPHYLAXIS
  3. VALPROATE SODIUM [Suspect]
  4. CLOPIDOGREL [Concomitant]

REACTIONS (1)
  - CHOREA [None]
